FAERS Safety Report 5675329-X (Version None)
Quarter: 2008Q2

REPORT INFORMATION
  Report Type: 
  Country: None (occurrence: None)
  Receive Date: 20080307
  Receipt Date: 20070607
  Transmission Date: 20081010
  Serious: Yes (Hospitalization, Other)
  Sender: FDA-Public Use
  Company Number: US200706001927

PATIENT
  Age: 69 Year
  Sex: Female

DRUGS (2)
  1. GEMZAR(GEMCITABINE HYDROCHLORIDE0 VIAL [Suspect]
     Indication: BREAST CANCER METASTATIC
     Dosage: 850 MG/M2, INTRAVENOUS
     Route: 042
     Dates: start: 20070601
  2. CARBOPLATIN [Concomitant]

REACTIONS (2)
  - ANAEMIA [None]
  - SEPSIS [None]
